FAERS Safety Report 5251848-5 (Version None)
Quarter: 2007Q1

REPORT INFORMATION
  Report Type: 
  Country: None (occurrence: None)
  Receive Date: 20070228
  Receipt Date: 20070222
  Transmission Date: 20070707
  Serious: Yes (Hospitalization)
  Sender: FDA-Public Use
  Company Number: US-BAXTER-2007BH000064

PATIENT
  Age: 47 Year
  Sex: Female
  Weight: 134 kg

DRUGS (1)
  1. DIANEAL [Suspect]
     Indication: PERITONEAL DIALYSIS
     Route: 033
     Dates: start: 20060710

REACTIONS (2)
  - PANCREATITIS [None]
  - PERITONITIS BACTERIAL [None]
